FAERS Safety Report 16754012 (Version 1)
Quarter: 2019Q3

REPORT INFORMATION
  Report Type: Spontaneous
  Country: BR (occurrence: BR)
  Receive Date: 20190829
  Receipt Date: 20190829
  Transmission Date: 20191005
  Serious: Yes (Other)
  Sender: FDA-Public Use
  Company Number: BR-EMD SERONO-9112596

PATIENT
  Age: 51 Year
  Sex: Female

DRUGS (4)
  1. GLIFAGE [Suspect]
     Active Substance: METFORMIN HYDROCHLORIDE
     Dosage: NEW FORMAT (ROUND FORMAT)
     Dates: start: 201908
  2. SELOZOK [Suspect]
     Active Substance: METOPROLOL SUCCINATE
     Indication: HEART RATE INCREASED
     Dosage: START DATE: 2017
  3. FORXIGA [Suspect]
     Active Substance: DAPAGLIFLOZIN
     Indication: PRODUCT USED FOR UNKNOWN INDICATION
  4. GLIFAGE [Suspect]
     Active Substance: METFORMIN HYDROCHLORIDE
     Indication: TYPE 2 DIABETES MELLITUS
     Dosage: 3 TABLETS A DAY, ELONGATED FORMAT
     Dates: start: 2009

REACTIONS (12)
  - Abdominal pain [Recovered/Resolved]
  - Weight increased [Not Recovered/Not Resolved]
  - Heart rate increased [Recovered/Resolved]
  - Extra dose administered [Unknown]
  - Deafness unilateral [Not Recovered/Not Resolved]
  - Blood glucose increased [Unknown]
  - Hepatic steatosis [Not Recovered/Not Resolved]
  - Tinnitus [Not Recovered/Not Resolved]
  - Vision blurred [Unknown]
  - Diarrhoea [Recovered/Resolved]
  - Renal disorder [Unknown]
  - Hypertension [Recovered/Resolved]

NARRATIVE: CASE EVENT DATE: 2009
